FAERS Safety Report 6238734-9 (Version None)
Quarter: 2009Q2

REPORT INFORMATION
  Report Type: 
  Country: None (occurrence: None)
  Receive Date: 20090622
  Receipt Date: 20090618
  Transmission Date: 20091009
  Serious: Yes (Life-Threatening)
  Sender: FDA-Public Use
  Company Number: JP-ASTRAZENECA-2009AP02632

PATIENT
  Age: 69 Year
  Sex: Male
  Weight: 44 kg

DRUGS (6)
  1. IRESSA [Suspect]
     Indication: LUNG ADENOCARCINOMA
     Route: 048
     Dates: start: 20081205, end: 20090402
  2. CLONAZEPAM [Concomitant]
     Indication: BIPOLAR I DISORDER
     Route: 048
     Dates: start: 20070626, end: 20090402
  3. OXYCODONE HYDROCHLORIDE [Concomitant]
     Indication: CANCER PAIN
     Dosage: 10 OR 20MG A DAY
     Route: 048
     Dates: start: 20070626, end: 20090330
  4. OPSO [Concomitant]
     Indication: CANCER PAIN
     Route: 048
     Dates: start: 20070626
  5. PACIF [Concomitant]
     Indication: CANCER PAIN
     Route: 048
     Dates: start: 20090401
  6. TS-1 [Concomitant]
     Route: 042
     Dates: start: 20080101

REACTIONS (1)
  - DUODENAL ULCER HAEMORRHAGE [None]
